FAERS Safety Report 10231075 (Version 3)
Quarter: 2014Q3

REPORT INFORMATION
  Report Type: Spontaneous
  Country: BR (occurrence: BR)
  Receive Date: 20140611
  Receipt Date: 20140715
  Transmission Date: 20150326
  Serious: Yes (Hospitalization)
  Sender: FDA-Public Use
  Company Number: BR-BRISTOL-MYERS SQUIBB COMPANY-20644027

PATIENT
  Age: 73 Year
  Sex: Male
  Weight: 58 kg

DRUGS (9)
  1. SYNTHROID [Concomitant]
     Active Substance: LEVOTHYROXINE SODIUM
  2. AAS [Concomitant]
     Active Substance: ASPIRIN
  3. MONOCORDIL [Concomitant]
     Active Substance: ISOSORBIDE MONONITRATE
  4. CARVEDILOL. [Concomitant]
     Active Substance: CARVEDILOL
  5. ANCORON [Concomitant]
     Active Substance: AMIODARONE HYDROCHLORIDE
  6. SINVACOR [Concomitant]
     Active Substance: SIMVASTATIN
  7. ELIQUIS [Suspect]
     Active Substance: APIXABAN
     Dosage: 2 TABS/D?INITIAL DOSE:2014:HALF A TAB BID
     Route: 048
     Dates: start: 20140409
  8. DIGOXIN. [Concomitant]
     Active Substance: DIGOXIN
  9. LASIX [Concomitant]
     Active Substance: FUROSEMIDE

REACTIONS (3)
  - Cardiac disorder [Unknown]
  - Drug prescribing error [Unknown]
  - Wrong technique in drug usage process [Unknown]
